FAERS Safety Report 6180023-5 (Version None)
Quarter: 2009Q2

REPORT INFORMATION
  Report Type: 
  Country: None (occurrence: None)
  Receive Date: 20090505
  Receipt Date: 20090429
  Transmission Date: 20091009
  Serious: Yes (Other)
  Sender: FDA-Public Use
  Company Number: DE-JNJCH-2009011744

PATIENT
  Sex: Female

DRUGS (2)
  1. REACTINE DUO [Suspect]
     Indication: NASAL CONGESTION
     Dosage: TEXT:1 TABLET TWICE A DAY
     Route: 048
  2. LEVOFLOXACIN [Suspect]
     Indication: INFECTION
     Dosage: TEXT:TWICE A DAY
     Route: 048

REACTIONS (5)
  - DERMATITIS ALLERGIC [None]
  - ERYTHEMA [None]
  - HOT FLUSH [None]
  - PYREXIA [None]
  - SWEATING FEVER [None]
